FAERS Safety Report 23750165 (Version 2)
Quarter: 2024Q2

REPORT INFORMATION
  Report Type: Other
  Country: CA (occurrence: CA)
  Receive Date: 20240417
  Receipt Date: 20240516
  Transmission Date: 20240715
  Serious: Yes (Other)
  Sender: FDA-Public Use
  Company Number: CA-CELLTRION INC.-2024CA008521

PATIENT

DRUGS (37)
  1. TRASTUZUMAB [Suspect]
     Active Substance: TRASTUZUMAB
     Indication: Pancreatic carcinoma metastatic
     Dosage: UNK
     Route: 065
  2. BEVACIZUMAB [Suspect]
     Active Substance: BEVACIZUMAB
     Indication: Product used for unknown indication
     Dosage: UNK
     Route: 065
  3. BEVACIZUMAB [Suspect]
     Active Substance: BEVACIZUMAB
     Dosage: UNK
     Route: 042
  4. CAPECITABINE [Suspect]
     Active Substance: CAPECITABINE
     Indication: Pancreatic carcinoma metastatic
     Route: 065
  5. ENTRECTINIB [Suspect]
     Active Substance: ENTRECTINIB
     Indication: Pancreatic carcinoma metastatic
     Route: 065
  6. GEMCITABINE [Suspect]
     Active Substance: GEMCITABINE
     Indication: Pancreatic carcinoma metastatic
     Route: 065
  7. GEMCITABINE [Suspect]
     Active Substance: GEMCITABINE
     Indication: Metastases to liver
     Dosage: UNK
  8. LORBRENA [Suspect]
     Active Substance: LORLATINIB
     Indication: Pancreatic carcinoma metastatic
     Route: 065
  9. LORBRENA [Suspect]
     Active Substance: LORLATINIB
     Indication: Neoplasm
  10. OXALIPLATIN [Suspect]
     Active Substance: OXALIPLATIN
     Indication: Pancreatic carcinoma metastatic
     Route: 065
  11. PEMBROLIZUMAB [Suspect]
     Active Substance: PEMBROLIZUMAB
     Indication: Pancreatic carcinoma metastatic
     Route: 065
  12. PEMETREXED [Suspect]
     Active Substance: PEMETREXED
     Indication: Pancreatic carcinoma metastatic
     Route: 065
  13. DOCETAXEL [Suspect]
     Active Substance: DOCETAXEL\DOCETAXEL ANHYDROUS
     Indication: Product used for unknown indication
     Route: 065
  14. KEYTRUDA [Suspect]
     Active Substance: PEMBROLIZUMAB
     Indication: Pancreatic carcinoma metastatic
  15. CAPECITABINE [Suspect]
     Active Substance: CAPECITABINE
     Indication: Pancreatic carcinoma metastatic
     Route: 065
  16. ALUNBRIG [Concomitant]
     Active Substance: BRIGATINIB
  17. ALUNBRIG [Concomitant]
     Active Substance: BRIGATINIB
  18. AMILOMER [Concomitant]
     Active Substance: AMILOMER
  19. CISPLATIN [Concomitant]
     Active Substance: CISPLATIN
     Route: 042
  20. DEMCIZUMAB [Concomitant]
     Active Substance: DEMCIZUMAB
  21. ETHIODIZED OIL [Concomitant]
     Active Substance: ETHIODIZED OIL
  22. FLUOROURACIL SODIUM [Concomitant]
     Active Substance: FLUOROURACIL SODIUM
     Dosage: UNK
  23. LEUCOVORIN [Concomitant]
     Active Substance: LEUCOVORIN\LEUCOVORIN CALCIUM
  24. IRINOTECAN [Concomitant]
     Active Substance: IRINOTECAN
  25. IRINOTECAN HYDROCHLORIDE [Concomitant]
     Active Substance: IRINOTECAN HYDROCHLORIDE
  26. MITOMYCIN [Concomitant]
     Active Substance: MITOMYCIN
  27. MITOMYCIN [Concomitant]
     Active Substance: MITOMYCIN
  28. OSIMERTINIB [Concomitant]
     Active Substance: OSIMERTINIB
  29. PERTUZUMAB [Concomitant]
     Active Substance: PERTUZUMAB
     Indication: Pancreatic carcinoma metastatic
     Route: 065
  30. TRASTUZUMAB DERUXTECAN [Concomitant]
     Active Substance: TRASTUZUMAB DERUXTECAN
  31. ENHERTU [Concomitant]
     Active Substance: FAM-TRASTUZUMAB DERUXTECAN-NXKI
  32. FLUOROURACIL [Concomitant]
     Active Substance: FLUOROURACIL
  33. PACLITAXEL [Concomitant]
     Active Substance: PACLITAXEL
  34. PACLITAXEL [Concomitant]
     Active Substance: PACLITAXEL
  35. AMILOMER [Concomitant]
     Active Substance: AMILOMER
  36. ENTRECTINIB [Concomitant]
     Active Substance: ENTRECTINIB
  37. LIPIODOL [Concomitant]
     Active Substance: ETHIODIZED OIL

REACTIONS (6)
  - Disease progression [Unknown]
  - Pancytopenia [Unknown]
  - Metastases to central nervous system [Unknown]
  - Metastases to liver [Unknown]
  - Off label use [Unknown]
  - Intentional product use issue [Unknown]
